FAERS Safety Report 4467094-9 (Version None)
Quarter: 2004Q4

REPORT INFORMATION
  Report Type: 
  Country: None (occurrence: None)
  Receive Date: 20041004
  Receipt Date: 20041004
  Transmission Date: 20050328
  Serious: Yes (Hospitalization)
  Sender: FDA-Public Use
  Company Number: None

PATIENT
  Age: 55 Year

DRUGS (1)
  1. TRAZODONE HCL [Suspect]
     Dosage: 100 MG @ HS

REACTIONS (2)
  - MEDICATION ERROR [None]
  - PRIAPISM [None]
